FAERS Safety Report 16998836 (Version 2)
Quarter: 2022Q2

REPORT INFORMATION
  Report Type: Spontaneous
  Country: KR (occurrence: KR)
  Receive Date: 20191106
  Receipt Date: 20220624
  Transmission Date: 20220721
  Serious: Yes (Hospitalization, Other)
  Sender: FDA-Public Use
  Company Number: KR-TEVA-2019-KR-1132181

PATIENT
  Age: 69 Year
  Sex: Male

DRUGS (8)
  1. CISPLATIN [Suspect]
     Active Substance: CISPLATIN
     Indication: Thymoma
     Dosage: HE UNDERWENT THE THIRD CYCLE OF CISPLATIN WITH A 30% REDUCED DOSE.
     Route: 065
  2. DOXORUBICIN [Suspect]
     Active Substance: DOXORUBICIN
     Indication: Thymoma
     Dosage: HE UNDERWENT THE THIRD CYCLE OF DOXORUBICIN WITH A 30% REDUCED DOSE.
     Route: 065
  3. CYCLOPHOSPHAMIDE [Suspect]
     Active Substance: CYCLOPHOSPHAMIDE
     Indication: Thymoma
     Dosage: HE UNDERWENT THE THIRD CYCLE OF CYCLOPHOSPHAMIDE WITH A 30% REDUCED DOSE.
     Route: 065
  4. PREDNISOLONE [Suspect]
     Active Substance: PREDNISOLONE
     Indication: Immune thrombocytopenia
     Dosage: 1 MG/KG DAILY;
     Route: 065
  5. DANAZOL [Suspect]
     Active Substance: DANAZOL
     Indication: Immune thrombocytopenia
     Route: 065
  6. CYCLOSPORINE [Suspect]
     Active Substance: CYCLOSPORINE
     Indication: Immune thrombocytopenia
     Route: 065
  7. AZATHIOPRINE [Suspect]
     Active Substance: AZATHIOPRINE
     Indication: Immune thrombocytopenia
     Route: 065
  8. HUMAN IMMUNOGLOBULIN G [Suspect]
     Active Substance: HUMAN IMMUNOGLOBULIN G
     Indication: Immune thrombocytopenia
     Route: 042

REACTIONS (6)
  - Myelosuppression [Recovering/Resolving]
  - Immune thrombocytopenia [Recovered/Resolved]
  - Diabetes mellitus [Unknown]
  - Haematochezia [Recovering/Resolving]
  - Myopathy [Unknown]
  - Treatment failure [Unknown]
